FAERS Safety Report 9375052 (Version 1)
Quarter: 2013Q2

REPORT INFORMATION
  Report Type: Spontaneous
  Country: US (occurrence: US)
  Receive Date: 20130628
  Receipt Date: 20130628
  Transmission Date: 20140414
  Serious: Yes (Death, Other)
  Sender: FDA-Public Use
  Company Number: US-INCYTE CORPORATION-2013IN001328

PATIENT
  Age: 57 Year
  Sex: Male

DRUGS (2)
  1. JAKAFI [Suspect]
     Indication: MYELOFIBROSIS
     Dosage: 5 MG, QD
  2. JAKAFI [Suspect]
     Dosage: UNK

REACTIONS (6)
  - Death [Fatal]
  - Splenomegaly [None]
  - Renal failure chronic [None]
  - General physical health deterioration [None]
  - Generalised oedema [None]
  - Fluid overload [None]
